FAERS Safety Report 16363665 (Version 1)
Quarter: 2019Q2

REPORT INFORMATION
  Report Type: Spontaneous
  Country: US (occurrence: US)
  Receive Date: 20190528
  Receipt Date: 20190528
  Transmission Date: 20190711
  Serious: No
  Sender: FDA-Public Use
  Company Number: US-ANIPHARMA-2019-US-005188

PATIENT
  Age: 56 Year
  Sex: Male
  Weight: 90.72 kg

DRUGS (4)
  1. KLONOPIN [Concomitant]
     Active Substance: CLONAZEPAM
     Dates: start: 2000
  2. LITHIUM CARBONATE EXTENDED RELEASE TABLETS USP [Suspect]
     Active Substance: LITHIUM CARBONATE
     Indication: BIPOLAR DISORDER
     Dosage: ONE TABLET THREE TIMES A DAY
     Route: 048
     Dates: start: 20190328, end: 20190330
  3. LITHOBID [Suspect]
     Active Substance: LITHIUM CARBONATE
     Dosage: 1 TABLET TID
     Route: 048
     Dates: start: 1990
  4. NEUROTIN [Concomitant]
     Active Substance: GABAPENTIN

REACTIONS (4)
  - Headache [Recovered/Resolved]
  - Drug ineffective [Not Recovered/Not Resolved]
  - Anxiety [Recovered/Resolved]
  - Mania [Recovered/Resolved]

NARRATIVE: CASE EVENT DATE: 20190328
